FAERS Safety Report 11850891 (Version 1)
Quarter: 2015Q4

REPORT INFORMATION
  Report Type: Spontaneous
  Country: US (occurrence: US)
  Receive Date: 20151218
  Receipt Date: 20151218
  Transmission Date: 20160305
  Serious: No
  Sender: FDA-Public Use
  Company Number: US-JNJFOC-20150204942

PATIENT
  Age: 67 Year
  Sex: Female
  Weight: 68.04 kg

DRUGS (3)
  1. WOMENS ROGAINE UNSCENTED [Suspect]
     Active Substance: MINOXIDIL
     Indication: ALOPECIA
     Dosage: HALF A CAPFUL ONCE A DAY
     Route: 061
     Dates: start: 20150116
  2. ALL OTHER THERAPEUTIC PRODUCTS [Concomitant]
     Active Substance: UNSPECIFIED INGREDIENT
     Indication: HAIR COLOUR CHANGES
     Route: 065
     Dates: start: 20150203
  3. WOMENS ROGAINE UNSCENTED [Suspect]
     Active Substance: MINOXIDIL
     Route: 061

REACTIONS (2)
  - Hair colour changes [Recovered/Resolved]
  - Hair texture abnormal [Unknown]

NARRATIVE: CASE EVENT DATE: 20150116
